FAERS Safety Report 9593066 (Version 2)
Quarter: 2013Q4

REPORT INFORMATION
  Report Type: Spontaneous
  Country: JP (occurrence: JP)
  Receive Date: 20131004
  Receipt Date: 20131016
  Transmission Date: 20140711
  Serious: Yes (Other)
  Sender: FDA-Public Use
  Company Number: JP-ASTELLAS-2013JP010104

PATIENT
  Sex: Female

DRUGS (4)
  1. PROGRAF [Suspect]
     Indication: INTERSTITIAL LUNG DISEASE
     Dosage: 2 MG, UNKNOWN/D
     Route: 048
     Dates: start: 201308, end: 2013
  2. PROGRAF [Suspect]
     Indication: DERMATOMYOSITIS
  3. CORTICOSTEROID NOS [Suspect]
     Dosage: 50 MG, UNKNOWN/D
     Route: 065
     Dates: start: 201308
  4. CORTICOSTEROID NOS [Suspect]
     Dosage: 25 MG, UNKNOWN/D
     Route: 065

REACTIONS (1)
  - IIIrd nerve paralysis [Recovering/Resolving]
